FAERS Safety Report 11771744 (Version 1)
Quarter: 2015Q4

REPORT INFORMATION
  Report Type: Spontaneous
  Country: US (occurrence: None)
  Receive Date: 20151123
  Receipt Date: 20151123
  Transmission Date: 20160304
  Serious: Yes (Other)
  Sender: FDA-Public Use
  Company Number: None

PATIENT
  Age: 70 Year
  Sex: Female
  Weight: 41.73 kg

DRUGS (16)
  1. AMBIEN [Concomitant]
     Active Substance: ZOLPIDEM TARTRATE
  2. LIPITOR [Concomitant]
     Active Substance: ATORVASTATIN CALCIUM
  3. LASIX [Concomitant]
     Active Substance: FUROSEMIDE
  4. PROTONIX [Concomitant]
     Active Substance: PANTOPRAZOLE SODIUM
  5. LATANOPROST. [Concomitant]
     Active Substance: LATANOPROST
  6. PROCARDIA [Concomitant]
     Active Substance: NIFEDIPINE
  7. CARVEDILOL. [Concomitant]
     Active Substance: CARVEDILOL
  8. INSULIN 70/30 [Concomitant]
     Active Substance: INSULIN HUMAN
  9. COZAAR [Concomitant]
     Active Substance: LOSARTAN POTASSIUM
  10. POLYETHYLENE GLCOL [Concomitant]
  11. VITAMIN B 12 COMPLEX [Concomitant]
  12. TYLENOL WITH CODEINE [Concomitant]
     Active Substance: ACETAMINOPHEN\CODEINE PHOSPHATE
  13. AMMONIUM LACTATE. [Concomitant]
     Active Substance: AMMONIUM LACTATE
  14. DRY EYES [Concomitant]
     Active Substance: MINERAL OIL\PETROLATUM
  15. NOVOLOG MIX 70/30 [Suspect]
     Active Substance: INSULIN ASPART
     Indication: BLOOD GLUCOSE INCREASED
     Dosage: INJECTIONS TWICE A DAY STRAIGHT INTO STOMACH
     Dates: start: 20151119, end: 20151120
  16. MIRALAX [Concomitant]
     Active Substance: POLYETHYLENE GLYCOL 3350

REACTIONS (6)
  - Heart rate increased [None]
  - Somnolence [None]
  - Hyperhidrosis [None]
  - Back pain [None]
  - Loss of consciousness [None]
  - Dizziness [None]

NARRATIVE: CASE EVENT DATE: 20151120
